FAERS Safety Report 8520360 (Version 3)
Quarter: 2012Q4

REPORT INFORMATION
  Report Type: 
  Country: FR (occurrence: FR)
  Receive Date: 20120418
  Receipt Date: 20121221
  Transmission Date: 20130627
  Serious: Yes (Hospitalization)
  Sender: FDA-Public Use
  Company Number: FR-GLAXOSMITHKLINE-B0794308A

PATIENT
  Sex: Male
  Weight: 69 kg

DRUGS (10)
  1. ZELITREX [Suspect]
     Indication: HERPES ZOSTER
     Dosage: 1G Twice per day
     Route: 048
     Dates: start: 201203, end: 20120316
  2. ZOVIRAX [Suspect]
     Indication: HERPES ZOSTER
     Route: 042
     Dates: start: 20120316, end: 20120326
  3. CORTANCYL [Concomitant]
     Dosage: 5MG per day
  4. IMUREL [Concomitant]
     Dosage: 75MG per day
  5. NEORAL [Concomitant]
     Dosage: 125MG Twice per day
  6. RENITEC [Concomitant]
     Dosage: 5MG per day
  7. TENORMINE [Concomitant]
     Dosage: 50MG per day
  8. ELISOR [Concomitant]
     Dosage: 10MG Per day
  9. EZETROL [Concomitant]
  10. KARDEGIC [Concomitant]
     Dosage: 75MG per day

REACTIONS (2)
  - Meningitis aseptic [Recovered/Resolved]
  - Headache [Recovered/Resolved]
